FAERS Safety Report 9862964 (Version 5)
Quarter: 2014Q3

REPORT INFORMATION
  Report Type: Report from Study
  Country: IT (occurrence: IT)
  Receive Date: 20140203
  Receipt Date: 20140828
  Transmission Date: 20150326
  Serious: Yes (Hospitalization)
  Sender: FDA-Public Use
  Company Number: IT-009507513-1401ITA013476

PATIENT
  Age: 59 Year
  Sex: Female
  Weight: 40 kg

DRUGS (8)
  1. EPREX [Concomitant]
     Active Substance: ERYTHROPOIETIN
     Indication: ANAEMIA
     Dosage: IU 1000, BIW
     Route: 058
     Dates: start: 20131122, end: 20140115
  2. EPREX [Concomitant]
     Active Substance: ERYTHROPOIETIN
     Dosage: IU 1000, TIW
     Route: 058
     Dates: start: 20140116, end: 20140312
  3. EUTHYROX [Concomitant]
     Active Substance: LEVOTHYROXINE SODIUM
     Indication: HYPOTHYROIDISM
     Dosage: 25 MICROGRAM, QD
     Route: 048
     Dates: start: 20130403
  4. GRANULOKINE [Concomitant]
     Active Substance: FILGRASTIM
     Indication: NEUTROPENIA
     Dosage: 30 MILLION IU, QW, ROUTE INJECTION
     Dates: start: 20131122, end: 20140521
  5. BOCEPREVIR [Suspect]
     Active Substance: BOCEPREVIR
     Indication: HEPATITIS C
     Dosage: 800 MG, TID (DOSE AT ONSET OF EVENT 800 MG)
     Route: 048
     Dates: start: 20131121
  6. ZOLOFT [Concomitant]
     Active Substance: SERTRALINE HYDROCHLORIDE
     Indication: DEPRESSION
     Dosage: 50 MG, QD
     Route: 048
     Dates: start: 20131122
  7. RIBAVIRIN. [Suspect]
     Active Substance: RIBAVIRIN
     Indication: HEPATITIS C
     Dosage: 400 MG MORNING + 400 MG EVENING (DOSE AT ONSET OF EVENT 200 MG MORNING + 200 MG EVENING)
     Route: 048
     Dates: start: 20131021
  8. PEGINTERFERON ALFA-2B [Suspect]
     Active Substance: PEGINTERFERON ALFA-2B
     Indication: HEPATITIS C
     Dosage: PEN 80 MICROGRAM-0.4 ML, QW (DOSE AT ONSET OF EVENT 800 MCG/0.3 ML, QW)
     Route: 058
     Dates: start: 20131021

REACTIONS (2)
  - Headache [Recovered/Resolved]
  - Pyrexia [Recovered/Resolved]

NARRATIVE: CASE EVENT DATE: 20140120
